FAERS Safety Report 13761197 (Version 4)
Quarter: 2019Q1

REPORT INFORMATION
  Report Type: Report from Study
  Country: US (occurrence: US)
  Receive Date: 20170717
  Receipt Date: 20190315
  Transmission Date: 20190417
  Serious: Yes (Death, Hospitalization, Other)
  Sender: FDA-Public Use
  Company Number: US-ACTELION-A-NJ2017-153276

PATIENT
  Age: 18 Year
  Sex: Male

DRUGS (5)
  1. OPSUMIT [Suspect]
     Active Substance: MACITENTAN
     Indication: PULMONARY HYPERTENSION
     Dosage: 10 MG, QD
     Route: 048
     Dates: start: 20170329
  2. WARFARIN [Suspect]
     Active Substance: WARFARIN
     Dosage: UNK
     Route: 065
  3. WARFARIN [Suspect]
     Active Substance: WARFARIN
     Indication: PRODUCT USED FOR UNKNOWN INDICATION
     Dosage: UNK
     Route: 065
  4. SILDENAFIL. [Concomitant]
     Active Substance: SILDENAFIL
  5. OPSUMIT [Suspect]
     Active Substance: MACITENTAN
     Dosage: 10 MG, QD
     Route: 048
     Dates: end: 20190218

REACTIONS (33)
  - Mental status changes [Unknown]
  - Groin pain [Unknown]
  - Cough [Unknown]
  - Cardiac failure [Unknown]
  - Blood chloride increased [Unknown]
  - Cerebral haemorrhage [Fatal]
  - Hypoxia [Unknown]
  - Oxygen saturation decreased [Unknown]
  - Dyspnoea [Unknown]
  - Base excess increased [Unknown]
  - Troponin increased [Unknown]
  - Haematemesis [Unknown]
  - Hypotension [Unknown]
  - Respiratory failure [Unknown]
  - Product dose omission [Unknown]
  - Cardiac arrest [Fatal]
  - Supraventricular tachycardia [Unknown]
  - PO2 increased [Unknown]
  - International normalised ratio increased [Unknown]
  - Blood urea increased [Unknown]
  - Pulmonary congestion [Unknown]
  - pH body fluid increased [Unknown]
  - Blood potassium increased [Unknown]
  - Red blood cell count decreased [Unknown]
  - Platelet count decreased [Unknown]
  - Haemorrhage intracranial [Unknown]
  - Fluid overload [Unknown]
  - Haemoglobin decreased [Unknown]
  - Pulmonary oedema [Unknown]
  - Pneumonia [Unknown]
  - Haematoma [Unknown]
  - Blood calcium increased [Unknown]
  - Haematocrit decreased [Unknown]

NARRATIVE: CASE EVENT DATE: 20170425
